FAERS Safety Report 7500361-0 (Version None)
Quarter: 2011Q2

REPORT INFORMATION
  Report Type: 
  Country: None (occurrence: None)
  Receive Date: 20110524
  Receipt Date: 20110509
  Transmission Date: 20111010
  Serious: Yes (Hospitalization, Other)
  Sender: FDA-Public Use
  Company Number: US-BAYER-201029092NA

PATIENT
  Age: 44 Year
  Sex: Female
  Weight: 80.272 kg

DRUGS (6)
  1. YASMIN [Suspect]
     Indication: ORAL CONTRACEPTION
     Dosage: UNK UNK, UNK
     Route: 048
     Dates: start: 20020101, end: 20080101
  2. DROSPIRENONE AND ETHINYL ESTRADIOL [Suspect]
     Indication: ORAL CONTRACEPTION
     Dosage: UNK
     Dates: start: 20080101, end: 20090101
  3. DROSPIRENONE AND ETHINYL ESTRADIOL [Suspect]
     Indication: MENORRHAGIA
  4. ESTRADIOL [Concomitant]
  5. FERROUS SULFATE TAB [Concomitant]
  6. YASMIN [Suspect]
     Indication: MENORRHAGIA

REACTIONS (5)
  - CHOLECYSTITIS [None]
  - GALLBLADDER DISORDER [None]
  - BACK PAIN [None]
  - CHOLELITHIASIS [None]
  - ABDOMINAL PAIN [None]
